FAERS Safety Report 24679211 (Version 1)
Quarter: 2024Q4

REPORT INFORMATION
  Report Type: Spontaneous
  Country: JP (occurrence: JP)
  Receive Date: 20241129
  Receipt Date: 20241129
  Transmission Date: 20250115
  Serious: Yes (Other)
  Sender: NOVARTIS
  Company Number: JP-002147023-NVSJ2024JP013860

PATIENT
  Age: 62 Year
  Sex: Male

DRUGS (2)
  1. NEORAL [Suspect]
     Active Substance: CYCLOSPORINE
     Indication: Myelodysplastic syndrome
     Dosage: UNK
     Route: 048
  2. NEORAL [Suspect]
     Active Substance: CYCLOSPORINE
     Indication: Aplastic anaemia

REACTIONS (11)
  - Myelodysplastic syndrome [Unknown]
  - Aplastic anaemia [Unknown]
  - Disease progression [Unknown]
  - Blast cell count increased [Unknown]
  - Pericardial effusion [Unknown]
  - Pneumonia [Unknown]
  - Eosinophil count increased [Unknown]
  - Pruritus [Unknown]
  - Erythema [Unknown]
  - Pleural effusion [Unknown]
  - Off label use [Unknown]
